FAERS Safety Report 6208411-9 (Version None)
Quarter: 2009Q2

REPORT INFORMATION
  Report Type: 
  Country: None (occurrence: None)
  Receive Date: 20090529
  Receipt Date: 20090518
  Transmission Date: 20091009
  Serious: Yes (Other)
  Sender: FDA-Public Use
  Company Number: BR-NOVOPROD-287419

PATIENT
  Age: 51 Year
  Sex: Female

DRUGS (4)
  1. NOVOLIN N [Suspect]
     Indication: INSULIN-REQUIRING TYPE 2 DIABETES MELLITUS
     Dosage: 50 IU, QD
  2. NOVOLIN N [Suspect]
     Dosage: 40 UNK, UNK
  3. ETANERCEPT [Suspect]
     Dosage: 50 MG, UNK
     Route: 058
  4. INSULIN REGULAR                    /01223201/ [Suspect]
     Indication: INSULIN-REQUIRING TYPE 2 DIABETES MELLITUS
     Dosage: 2-8 IU

REACTIONS (3)
  - DRUG INTERACTION [None]
  - HYPERGLYCAEMIA [None]
  - HYPOGLYCAEMIA [None]
